FAERS Safety Report 6553452-5 (Version None)
Quarter: 2010Q1

REPORT INFORMATION
  Report Type: 
  Country: None (occurrence: None)
  Receive Date: 20100122
  Receipt Date: 20100106
  Transmission Date: 20100710
  Serious: Yes (Death)
  Sender: FDA-Public Use
  Company Number: 2010AC000045

PATIENT
  Age: 74 Year
  Sex: Male

DRUGS (12)
  1. DIGOXIN [Suspect]
     Dosage: 1.25 MG; PO
     Route: 048
  2. FINASTERIDE [Concomitant]
  3. SIMVASTATIN [Concomitant]
  4. COUMADIN [Concomitant]
  5. TRAVATAN [Concomitant]
  6. DOXAZOSIN MESYLATE [Concomitant]
  7. MESYLATE [Concomitant]
  8. VYTORIN [Concomitant]
  9. LORAZEPAM [Concomitant]
  10. MORPHINE [Concomitant]
  11. GLYCOPYRROLATE [Concomitant]
  12. FUROSEMIDE [Concomitant]

REACTIONS (15)
  - ACUTE MYOCARDIAL INFARCTION [None]
  - AORTIC VALVE INCOMPETENCE [None]
  - CARDIOMYOPATHY [None]
  - CONVULSION [None]
  - DILATATION VENTRICULAR [None]
  - ECONOMIC PROBLEM [None]
  - EJECTION FRACTION DECREASED [None]
  - LEFT ATRIAL DILATATION [None]
  - LEFT VENTRICULAR DYSFUNCTION [None]
  - LOSS OF CONSCIOUSNESS [None]
  - MITRAL VALVE CALCIFICATION [None]
  - MITRAL VALVE INCOMPETENCE [None]
  - TRICUSPID VALVE INCOMPETENCE [None]
  - UNRESPONSIVE TO STIMULI [None]
  - VENTRICULAR HYPOKINESIA [None]
